FAERS Safety Report 8710405 (Version 5)
Quarter: 2013Q4

REPORT INFORMATION
  Report Type: Report from Study
  Country: JP (occurrence: JP)
  Receive Date: 20120807
  Receipt Date: 20131118
  Transmission Date: 20140711
  Serious: Yes (Hospitalization, Other)
  Sender: FDA-Public Use
  Company Number: JP-VERTEX PHARMACEUTICALS INC.-AE-2012-011262

PATIENT
  Age: 62 Year
  Sex: Male

DRUGS (15)
  1. VX-950 (TELAPREVIR) [Suspect]
     Indication: CHRONIC HEPATITIS C
     Dosage: 2250 MG, QD
     Route: 048
     Dates: start: 20120412, end: 20120524
  2. VX-950 (TELAPREVIR) [Suspect]
     Dosage: 1500 MG, QD
     Route: 048
     Dates: start: 20120525, end: 20120530
  3. REBETOL [Suspect]
     Indication: CHRONIC HEPATITIS C
     Dosage: 800 MG, QD
     Route: 048
     Dates: start: 20120412, end: 20120426
  4. REBETOL [Suspect]
     Dosage: 600 MG, QD
     Route: 048
     Dates: start: 20120427, end: 20120501
  5. REBETOL [Suspect]
     Dosage: 200 MG, QD
     Route: 048
     Dates: start: 20120502, end: 20120509
  6. REBETOL [Suspect]
     Dosage: 200 MG, QOD
     Route: 048
     Dates: start: 20120510, end: 20120530
  7. PEGINTRON [Suspect]
     Indication: CHRONIC HEPATITIS C
     Dosage: 1.5 ?G/KG, QW
     Route: 058
     Dates: start: 20120412, end: 20120502
  8. PEGINTRON [Suspect]
     Dosage: 1.25 ?G/KG, QW
     Route: 058
     Dates: start: 20120510, end: 20120524
  9. URSO [Concomitant]
     Dosage: 600 MG, QD
     Route: 048
  10. PARIET [Concomitant]
     Dosage: 10 MG, QD
     Route: 048
  11. AMLODIN [Concomitant]
     Dosage: 5 MG, QD
     Route: 048
     Dates: end: 20120531
  12. AMOBAN [Concomitant]
     Dosage: 7.5 MG, QD
     Route: 048
     Dates: end: 20120531
  13. JANUVIA [Concomitant]
     Dosage: 50 MG, QD
     Route: 048
     Dates: end: 20120531
  14. AMARYL [Concomitant]
     Dosage: 3 MG, QD
     Route: 048
     Dates: start: 20120416, end: 20120517
  15. LOXONIN [Concomitant]
     Dosage: 120 MG, QD
     Route: 048
     Dates: start: 20120419, end: 20120531

REACTIONS (3)
  - Renal disorder [Recovered/Resolved]
  - Decreased appetite [Recovered/Resolved]
  - Anaemia [Recovered/Resolved]
